FAERS Safety Report 17684972 (Version 2)
Quarter: 2021Q4

REPORT INFORMATION
  Report Type: Report from Study
  Country: US (occurrence: US)
  Receive Date: 20200420
  Receipt Date: 20211003
  Transmission Date: 20220303
  Serious: Yes (Death)
  Sender: FDA-Public Use
  Company Number: NVSC2020US105077

PATIENT
  Sex: Female
  Weight: 60.32 kg

DRUGS (1)
  1. AFINITOR [Suspect]
     Active Substance: EVEROLIMUS
     Indication: Breast cancer metastatic
     Dosage: 10 MG
     Route: 048
     Dates: start: 20180512, end: 20200122

REACTIONS (1)
  - Death [Fatal]
